FAERS Safety Report 4531174-X (Version None)
Quarter: 2004Q4

REPORT INFORMATION
  Report Type: 
  Country: None (occurrence: None)
  Receive Date: 20041130
  Receipt Date: 20031027
  Transmission Date: 20050328
  Serious: Yes (Disabling)
  Sender: FDA-Public Use
  Company Number: WAES 0310USA02952

PATIENT
  Age: 53 Year
  Sex: Female

DRUGS (1)
  1. FOSAMAX [Suspect]
     Indication: OSTEOPOROSIS
     Dosage: OSTEOPOROSIS NOS
     Dates: start: 20030401, end: 20030916

REACTIONS (2)
  - ARTHRALGIA [None]
  - BONE PAIN [None]
